FAERS Safety Report 12864873 (Version 1)
Quarter: 2016Q4

REPORT INFORMATION
  Report Type: Spontaneous
  Country: US (occurrence: US)
  Receive Date: 20161019
  Receipt Date: 20161019
  Transmission Date: 20170207
  Serious: Yes (Other)
  Sender: FDA-Public Use
  Company Number: None

PATIENT
  Age: 47 Year
  Sex: Female
  Weight: 67.5 kg

DRUGS (12)
  1. PSEUDOEPHEDRINE HYDROCHLORIDE. [Concomitant]
     Active Substance: PSEUDOEPHEDRINE HYDROCHLORIDE
  2. METHYPREDNISOLONE [Concomitant]
     Active Substance: METHYLPREDNISOLONE
  3. SINGULAIR [Concomitant]
     Active Substance: MONTELUKAST SODIUM
  4. BENZONATATE 100MG CAP [Suspect]
     Active Substance: BENZONATATE
     Indication: ACUTE SINUSITIS
     Dosage: ?          QUANTITY:1 CAPSULE(S);?
     Route: 048
     Dates: start: 20161018, end: 20161018
  5. GOLDENSEAL ROOT [Concomitant]
  6. VITEX FRUIT [Concomitant]
  7. BENZONATATE 100MG CAP [Suspect]
     Active Substance: BENZONATATE
     Indication: COUGH
     Dosage: ?          QUANTITY:1 CAPSULE(S);?
     Route: 048
     Dates: start: 20161018, end: 20161018
  8. CLINDAMYCIN HCL [Concomitant]
     Active Substance: CLINDAMYCIN HYDROCHLORIDE
  9. IPTRATROPIUM [Concomitant]
  10. MILK THISTLE [Concomitant]
     Active Substance: MILK THISTLE
  11. DANDELION [Concomitant]
     Active Substance: TARAXACUM OFFICINALE POLLEN
  12. ALOE VERA [Concomitant]
     Active Substance: ALOE VERA LEAF

REACTIONS (7)
  - Somnolence [None]
  - Upper-airway cough syndrome [None]
  - Dysphagia [None]
  - Dizziness [None]
  - Dyspnoea [None]
  - Tachycardia [None]
  - Paraesthesia oral [None]

NARRATIVE: CASE EVENT DATE: 20161018
